FAERS Safety Report 4643907-2 (Version None)
Quarter: 2005Q2

REPORT INFORMATION
  Report Type: 
  Country: None (occurrence: None)
  Receive Date: 20050425
  Receipt Date: 20050413
  Transmission Date: 20051028
  Serious: Yes (Hospitalization, Other)
  Sender: FDA-Public Use
  Company Number: US-BRISTOL-MYERS SQUIBB COMPANY-12931937

PATIENT
  Age: 72 Year
  Sex: Male

DRUGS (2)
  1. COUMADIN [Suspect]
     Dosage: RECEIVED 11 MG WHICH WAS INCREASED TO 15 MG
  2. LOVENOX [Suspect]
     Indication: DEEP VEIN THROMBOSIS

REACTIONS (2)
  - SUBCUTANEOUS ABSCESS [None]
  - WOUND HAEMORRHAGE [None]
